FAERS Safety Report 9434526 (Version 1)
Quarter: 2013Q3

REPORT INFORMATION
  Report Type: Spontaneous
  Country: US (occurrence: US)
  Receive Date: 20130801
  Receipt Date: 20130801
  Transmission Date: 20140515
  Serious: No
  Sender: FDA-Public Use
  Company Number: US-PFIZER INC-2013224069

PATIENT
  Age: 49 Year
  Sex: Male
  Weight: 77.1 kg

DRUGS (2)
  1. LYRICA [Suspect]
     Indication: RESTLESS LEGS SYNDROME
     Dosage: 75 MG, 2X/DAY
     Route: 048
     Dates: start: 201009
  2. LYRICA [Suspect]
     Dosage: 50MG IN MORNING, 50MG IN AFTERNOON, AND 150MG IN NIGHT, 3X/DAY
     Route: 048
     Dates: end: 201107

REACTIONS (2)
  - Off label use [Recovered/Resolved]
  - High density lipoprotein decreased [Unknown]
